FAERS Safety Report 10413262 (Version 11)
Quarter: 2016Q1

REPORT INFORMATION
  Report Type: Spontaneous
  Country: US (occurrence: US)
  Receive Date: 20140827
  Receipt Date: 20160112
  Transmission Date: 20160525
  Serious: Yes (Hospitalization, Other)
  Sender: FDA-Public Use
  Company Number: US-009507513-1408USA011538

PATIENT
  Sex: Female
  Weight: 60.77 kg

DRUGS (3)
  1. FOSAMAX PLUS D [Suspect]
     Active Substance: ALENDRONATE SODIUM\CHOLECALCIFEROL
     Indication: OSTEOPOROSIS
     Dosage: 70 MG/2800, QW
     Route: 048
     Dates: start: 2006, end: 200801
  2. ASCORBIC ACID. [Concomitant]
     Active Substance: ASCORBIC ACID
     Indication: PRODUCT USED FOR UNKNOWN INDICATION
     Dosage: 500 MG, QD
     Route: 048
     Dates: start: 1974
  3. FOSAMAX [Suspect]
     Active Substance: ALENDRONATE SODIUM
     Indication: OSTEOPOROSIS
     Dosage: 70 MG, QW
     Route: 048
     Dates: start: 20021015

REACTIONS (50)
  - Upper limb fracture [Not Recovered/Not Resolved]
  - Muscle spasms [Unknown]
  - Restless legs syndrome [Unknown]
  - Anxiety [Unknown]
  - Vitamin D deficiency [Unknown]
  - Depression [Unknown]
  - Squamous cell carcinoma of skin [Unknown]
  - Syncope [Unknown]
  - Bone density decreased [Unknown]
  - Osteoporosis [Unknown]
  - Diverticulitis [Unknown]
  - Ankle fracture [Unknown]
  - Myalgia [Unknown]
  - Intramedullary rod insertion [Unknown]
  - Haemorrhage [Unknown]
  - Squamous cell carcinoma [Unknown]
  - Pulmonary mass [Unknown]
  - Cerebrovascular accident [Unknown]
  - Breast cancer [Unknown]
  - Bone fragmentation [Unknown]
  - Intracranial aneurysm [Unknown]
  - Dizziness [Unknown]
  - Dyspepsia [Unknown]
  - Ulna fracture [Not Recovered/Not Resolved]
  - Mastectomy [Unknown]
  - Influenza [Unknown]
  - Laceration [Unknown]
  - Type 2 diabetes mellitus [Unknown]
  - Transfusion [Unknown]
  - Osteopenia [Unknown]
  - Infection [Unknown]
  - Balance disorder [Recovering/Resolving]
  - Ankle operation [Unknown]
  - Drug hypersensitivity [Unknown]
  - Fall [Unknown]
  - Pain in extremity [Unknown]
  - Skin wound [Recovering/Resolving]
  - Limb injury [Recovering/Resolving]
  - Spinal osteoarthritis [Unknown]
  - Sepsis [Unknown]
  - Fall [Unknown]
  - Helicobacter infection [Unknown]
  - Fatigue [Unknown]
  - Contusion [Unknown]
  - Arthritis [Unknown]
  - Ankle fracture [Unknown]
  - Femur fracture [Recovering/Resolving]
  - Osteoarthritis [Unknown]
  - Adverse drug reaction [Unknown]
  - Fracture nonunion [Unknown]

NARRATIVE: CASE EVENT DATE: 2004
